FAERS Safety Report 4641748-3 (Version None)
Quarter: 2005Q2

REPORT INFORMATION
  Report Type: 
  Country: None (occurrence: None)
  Receive Date: 20050421
  Receipt Date: 20050407
  Transmission Date: 20051028
  Serious: Yes (Other)
  Sender: FDA-Public Use
  Company Number: 2005056752

PATIENT
  Age: 46 Year
  Sex: Male
  Weight: 127.0072 kg

DRUGS (1)
  1. CELEBREX [Suspect]
     Indication: ARTHRITIS
     Dosage: 200 MG (200 MG, 1 IN 1 D)

REACTIONS (4)
  - CARDIAC OPERATION [None]
  - DYSPNOEA [None]
  - HIP SURGERY [None]
  - KNEE OPERATION [None]
